FAERS Safety Report 6904031-9 (Version None)
Quarter: 2010Q3

REPORT INFORMATION
  Report Type: 
  Country: None (occurrence: None)
  Receive Date: 20100804
  Receipt Date: 20090302
  Transmission Date: 20110219
  Serious: No
  Sender: FDA-Public Use
  Company Number: US-PFIZER INC-2008094347

PATIENT
  Sex: Male
  Weight: 93.4 kg

DRUGS (14)
  1. LYRICA [Suspect]
     Indication: NEUROPATHY PERIPHERAL
     Dosage: 75 MG, 2X/DAY
     Dates: start: 20061001
  2. CHEMOTHERAPY NOS [Suspect]
     Indication: LUNG NEOPLASM MALIGNANT
     Dates: start: 20061201, end: 20070301
  3. FINASTERIDE [Concomitant]
  4. HYDROCHLOROTHIAZIDE [Concomitant]
  5. DARVOCET [Concomitant]
  6. ZOCOR [Concomitant]
  7. LISINOPRIL [Concomitant]
  8. PRILOSEC [Concomitant]
  9. NASAL PREPARATIONS [Concomitant]
  10. ALBUTEROL [Concomitant]
  11. MOMETASONE FUROATE [Concomitant]
  12. VYTONE [Concomitant]
  13. CLOBETASOL PROPIONATE [Concomitant]
  14. MULTI-VITAMINS [Concomitant]

REACTIONS (5)
  - ABNORMAL BEHAVIOUR [None]
  - ANXIETY [None]
  - ASTHENIA [None]
  - DEPRESSED MOOD [None]
  - DRUG INEFFECTIVE [None]
